FAERS Safety Report 6512434-X (Version None)
Quarter: 2009Q4

REPORT INFORMATION
  Report Type: 
  Country: None (occurrence: None)
  Receive Date: 20091222
  Receipt Date: 20091022
  Transmission Date: 20100525
  Serious: No
  Sender: FDA-Public Use
  Company Number: US-ASTRAZENECA-2009SE21944

PATIENT
  Sex: Female
  Weight: 73.5 kg

DRUGS (5)
  1. CRESTOR [Suspect]
     Indication: BLOOD CHOLESTEROL DECREASED
     Route: 048
     Dates: start: 20080101, end: 20080101
  2. SKELAXIN [Concomitant]
  3. TYLENOL (CAPLET) [Concomitant]
  4. NASACORT [Concomitant]
  5. ACTINEL [Concomitant]

REACTIONS (1)
  - PAIN IN EXTREMITY [None]
